FAERS Safety Report 20916500 (Version 1)
Quarter: 2022Q2

REPORT INFORMATION
  Report Type: Spontaneous
  Country: US (occurrence: US)
  Receive Date: 20220605
  Receipt Date: 20220605
  Transmission Date: 20220721
  Serious: Yes (Death, Other)
  Sender: FDA-Public Use
  Company Number: US-BRISTOL-MYERS SQUIBB COMPANY-2022-052591

PATIENT
  Age: 71 Year
  Sex: Female
  Weight: 30.84 kg

DRUGS (7)
  1. ELIQUIS [Suspect]
     Active Substance: APIXABAN
     Indication: Cerebrovascular accident prophylaxis
     Dosage: DOSE : 5MG;     FREQ : TWICE DAILY
     Route: 048
  2. FERROUS SULFATE [Concomitant]
     Active Substance: FERROUS SULFATE
     Dates: start: 20210121
  3. FUROSEMIDE [Concomitant]
     Active Substance: FUROSEMIDE
     Dates: start: 20210121
  4. POLYETHYLENE GLYCOL COMPOUND [Concomitant]
     Indication: Constipation
     Dates: start: 20210121
  5. HYDROCODONE [Concomitant]
     Active Substance: HYDROCODONE
     Dates: start: 20220210
  6. DEXAMETHASONE [Concomitant]
     Active Substance: DEXAMETHASONE
     Dates: start: 20220210
  7. SULFAMETHOPRIM [Concomitant]
     Active Substance: SULFAMETHOXAZOLE
     Dates: start: 20220210

REACTIONS (1)
  - Death [Fatal]

NARRATIVE: CASE EVENT DATE: 20220218
